FAERS Safety Report 14712680 (Version 6)
Quarter: 2019Q3

REPORT INFORMATION
  Report Type: Report from Study
  Country: FR (occurrence: FR)
  Receive Date: 20180404
  Receipt Date: 20190709
  Transmission Date: 20191004
  Serious: Yes (Death, Hospitalization, Other)
  Sender: FDA-Public Use
  Company Number: FR-BRISTOL-MYERS SQUIBB COMPANY-BMS-2018-028691

PATIENT
  Age: 80 Year
  Sex: Female
  Weight: 65 kg

DRUGS (7)
  1. KARDEGIC [Suspect]
     Active Substance: ASPIRIN DL-LYSINE
     Indication: PRODUCT USED FOR UNKNOWN INDICATION
     Dosage: 75 MG, DAILY
     Route: 048
     Dates: start: 20180111, end: 20180227
  2. LASILIX                            /00032601/ [Concomitant]
     Active Substance: FUROSEMIDE
     Indication: CARDIAC FAILURE
     Dosage: 40 MG, DAILY
     Route: 065
     Dates: start: 20170412, end: 20180320
  3. APIXABAN [Suspect]
     Active Substance: APIXABAN
     Indication: CEREBROVASCULAR ACCIDENT PROPHYLAXIS
     Dosage: 10 MG, DAILY
     Route: 048
     Dates: start: 20180108, end: 20180222
  4. RAMIPRIL. [Concomitant]
     Active Substance: RAMIPRIL
     Indication: HYPERTENSION
     Dosage: 2.5 MG, DAILY
     Route: 065
     Dates: start: 20170412, end: 20180320
  5. LEVOTHYROX [Concomitant]
     Active Substance: LEVOTHYROXINE
     Indication: HYPOTHYROIDISM
     Dosage: 18.75 ?G, DAILY
     Route: 065
     Dates: start: 20170412, end: 20180320
  6. BISOCE [Concomitant]
     Active Substance: BISOPROLOL
     Indication: CARDIAC FAILURE
     Dosage: 2.25 MG, DAILY
     Route: 048
     Dates: start: 20180301, end: 20180320
  7. CORDARONE [Concomitant]
     Active Substance: AMIODARONE HYDROCHLORIDE
     Indication: PRODUCT USED FOR UNKNOWN INDICATION
     Dosage: 200 MG, DAILY
     Route: 065
     Dates: start: 20170412, end: 20180320

REACTIONS (13)
  - Pneumonia escherichia [Not Recovered/Not Resolved]
  - Intestinal ischaemia [Fatal]
  - Hepatic failure [Unknown]
  - Disseminated intravascular coagulation [Unknown]
  - Right ventricular failure [Unknown]
  - Vasoplegia syndrome [Unknown]
  - Septic shock [Not Recovered/Not Resolved]
  - Renal failure [Unknown]
  - Mitral valve stenosis [Not Recovered/Not Resolved]
  - Escherichia urinary tract infection [Not Recovered/Not Resolved]
  - Multiple organ dysfunction syndrome [Fatal]
  - Hypoglycaemia [Unknown]
  - Haemoglobin decreased [Recovered/Resolved]

NARRATIVE: CASE EVENT DATE: 20180227
